FAERS Safety Report 18169140 (Version 1)
Quarter: 2020Q3

REPORT INFORMATION
  Report Type: Spontaneous
  Country: IN (occurrence: IN)
  Receive Date: 20200819
  Receipt Date: 20200819
  Transmission Date: 20201103
  Serious: Yes (Hospitalization)
  Sender: FDA-Public Use
  Company Number: IN-CADILA HEALTHCARE LIMITED-IN-ZYDUS-054741

PATIENT

DRUGS (6)
  1. ASPIRIN + CLOPIDOGREL [Suspect]
     Active Substance: ASPIRIN\CLOPIDOGREL
     Indication: ANTIPLATELET THERAPY
     Dosage: UNK, QD (75/75 MG)
     Route: 065
  2. ASPIRIN + CLOPIDOGREL [Suspect]
     Active Substance: ASPIRIN\CLOPIDOGREL
     Dosage: UNK
     Route: 065
  3. TELMISARTAN. [Suspect]
     Active Substance: TELMISARTAN
     Indication: HYPERTENSION
     Dosage: 40 MILLIGRAM, QD
     Route: 065
     Dates: start: 20180126
  4. CHLOROTHIAZIDE. [Concomitant]
     Active Substance: CHLOROTHIAZIDE
     Indication: HYPERTENSION
     Dosage: 12.5 MILLIGRAM, QD
     Route: 065
  5. BENIDIPINE [Concomitant]
     Active Substance: BENIDIPINE
     Indication: PRODUCT USED FOR UNKNOWN INDICATION
     Dosage: 4 MILLIGRAM, QD
  6. METOPROLOL. [Concomitant]
     Active Substance: METOPROLOL
     Indication: HYPERTENSION
     Dosage: 25 MILLIGRAM, QD
     Route: 065

REACTIONS (4)
  - Mouth ulceration [Recovered/Resolved]
  - Ulcer haemorrhage [Recovered/Resolved]
  - Angioedema [Recovered/Resolved]
  - Chronic gastritis [Unknown]

NARRATIVE: CASE EVENT DATE: 20180128
